FAERS Safety Report 8607980-9 (Version None)
Quarter: 2012Q3

REPORT INFORMATION
  Report Type: 
  Country: None (occurrence: None)
  Receive Date: 20120806
  Receipt Date: 20120621
  Transmission Date: 20120928
  Serious: Yes (Hospitalization)
  Sender: FDA-Public Use
  Company Number: DSA_58045_2012

PATIENT
  Sex: Female

DRUGS (7)
  1. XENAZINE [Suspect]
     Indication: CHARLES BONNET SYNDROME
     Dosage: (12.5 MG QD ORAL), (12.5 MG QD ORAL)
     Route: 048
     Dates: start: 20120527, end: 20120531
  2. XENAZINE [Suspect]
     Indication: USHER'S SYNDROME
     Dosage: (12.5 MG QD ORAL), (12.5 MG QD ORAL)
     Route: 048
     Dates: start: 20120527, end: 20120531
  3. XENAZINE [Suspect]
     Indication: CHARLES BONNET SYNDROME
     Dosage: (12.5 MG QD ORAL), (12.5 MG QD ORAL)
     Route: 048
     Dates: start: 20120428, end: 20120430
  4. XENAZINE [Suspect]
     Indication: USHER'S SYNDROME
     Dosage: (12.5 MG QD ORAL), (12.5 MG QD ORAL)
     Route: 048
     Dates: start: 20120428, end: 20120430
  5. JANUVIA [Concomitant]
  6. GLUCOTROL [Concomitant]
  7. PRANDIN /01393601/ [Concomitant]

REACTIONS (3)
  - CONDITION AGGRAVATED [None]
  - LACTIC ACIDOSIS [None]
  - HALLUCINATION [None]
